FAERS Safety Report 9858272 (Version 2)
Quarter: 2014Q2

REPORT INFORMATION
  Report Type: Spontaneous
  Country: CH (occurrence: None)
  Receive Date: 20140129
  Receipt Date: 20140529
  Transmission Date: 20141212
  Serious: Yes (Life-Threatening, Hospitalization)
  Sender: FDA-Public Use
  Company Number: 20140010

PATIENT
  Age: 28 Year
  Sex: Female
  Weight: 60 kg

DRUGS (2)
  1. FERINJECT (FERRIC CARBOXYMALTOSE - VIFOR) (FER-VIFOR-10) (FERRIC CARBOXYMALTOSE INJECTION) 50 MG/ML [Suspect]
     Indication: IRON DEFICIENCY ANAEMIA
     Dosage: 1000 MG, OVER 15 MINUTES INTRAVENOUS DRIP
     Route: 041
     Dates: start: 20131230, end: 20131230
  2. IUMI (DROSPIRENONA, ETINILESTRADIOL) [Concomitant]

REACTIONS (12)
  - Headache [None]
  - Neck pain [None]
  - Back pain [None]
  - Vomiting [None]
  - Nausea [None]
  - Septic shock [None]
  - Hypokalaemia [None]
  - Haemoglobin decreased [None]
  - Blood potassium decreased [None]
  - Blood pressure decreased [None]
  - Abortion infected [None]
  - Exposure during pregnancy [None]
